FAERS Safety Report 9007867 (Version 1)
Quarter: 2013Q1

REPORT INFORMATION
  Report Type: Spontaneous
  Country: US (occurrence: US)
  Receive Date: 20130111
  Receipt Date: 20130111
  Transmission Date: 20140127
  Serious: Yes (Other)
  Sender: FDA-Public Use
  Company Number: US-009507513-0911USA00568

PATIENT
  Age: 8 Year
  Sex: Male
  Weight: 31.75 kg

DRUGS (2)
  1. SINGULAIR [Suspect]
     Indication: ASTHMA
     Dosage: 1 DF, QD
     Route: 048
  2. SINGULAIR [Suspect]
     Indication: MULTIPLE ALLERGIES

REACTIONS (4)
  - Dry eye [Recovered/Resolved]
  - Dyskinesia [Recovered/Resolved]
  - Excessive eye blinking [Recovered/Resolved]
  - Tic [Recovered/Resolved]
